FAERS Safety Report 8084954-0 (Version None)
Quarter: 2012Q1

REPORT INFORMATION
  Report Type: 
  Country: None (occurrence: None)
  Receive Date: 20120128
  Receipt Date: 20110329
  Transmission Date: 20120608
  Serious: No
  Sender: FDA-Public Use
  Company Number: US-ABBOTT-11P-163-0715526-00

PATIENT
  Sex: Female
  Weight: 92.616 kg

DRUGS (1)
  1. HUMIRA [Suspect]
     Indication: CROHN'S DISEASE
     Dates: start: 20100901

REACTIONS (4)
  - ERYTHEMA [None]
  - BURNING SENSATION [None]
  - PAIN IN EXTREMITY [None]
  - FEELING HOT [None]
